FAERS Safety Report 16483051 (Version 1)
Quarter: 2019Q2

REPORT INFORMATION
  Report Type: Spontaneous
  Country: US (occurrence: US)
  Receive Date: 20190515
  Receipt Date: 20190515
  Transmission Date: 20190711
  Serious: Yes (Other)
  Sender: FDA-Public Use
  Company Number: None

PATIENT
  Age: 66 Year
  Sex: Male
  Weight: 95.25 kg

DRUGS (10)
  1. LEFLUNOMIDE. [Suspect]
     Active Substance: LEFLUNOMIDE
     Indication: RHEUMATOID ARTHRITIS
     Dosage: ?          QUANTITY:20 MG MILLIGRAM(S);?
     Route: 048
     Dates: start: 201804, end: 20190502
  2. ROSUVASTATIN. [Concomitant]
     Active Substance: ROSUVASTATIN
  3. DESLORATADINE. [Concomitant]
     Active Substance: DESLORATADINE
  4. ATENOLOL. [Concomitant]
     Active Substance: ATENOLOL
  5. OSTEO BI-FLEX EASE [Concomitant]
  6. CBD HEMP EXTRACT [Concomitant]
  7. LEFLUNOMIDE. [Concomitant]
     Active Substance: LEFLUNOMIDE
  8. CURUMIN [Concomitant]
  9. VITAMIN C [Concomitant]
     Active Substance: ASCORBIC ACID
  10. LOW DOSE ASPIRIN [Concomitant]
     Active Substance: ASPIRIN

REACTIONS (6)
  - Diarrhoea [None]
  - Decreased appetite [None]
  - Nausea [None]
  - Headache [None]
  - Abdominal pain upper [None]
  - Weight decreased [None]

NARRATIVE: CASE EVENT DATE: 20190407
